FAERS Safety Report 4881901-7 (Version None)
Quarter: 2006Q1

REPORT INFORMATION
  Report Type: 
  Country: None (occurrence: None)
  Receive Date: 20060111
  Receipt Date: 20060102
  Transmission Date: 20060701
  Serious: Yes (Hospitalization, Other)
  Sender: FDA-Public Use
  Company Number: HQWYE189104JAN06

PATIENT
  Age: 57 Year
  Sex: Female

DRUGS (1)
  1. TAZONAM (PIPERACILLIN/TAZOBACTAM, INJECTION) [Suspect]

REACTIONS (1)
  - EMPYEMA [None]
